FAERS Safety Report 4359309-2 (Version None)
Quarter: 2004Q2

REPORT INFORMATION
  Report Type: 
  Country: None (occurrence: None)
  Receive Date: 20040512
  Receipt Date: 20031010
  Transmission Date: 20050107
  Serious: Yes (Other)
  Sender: FDA-Public Use
  Company Number: 233783K03USA

PATIENT
  Age: 61 Year
  Sex: Male

DRUGS (7)
  1. REBIF [Suspect]
     Indication: MULTIPLE SCLEROSIS
     Dosage: 44 MCG, 3 IN 1 WEEKS,
     Dates: start: 20030401
  2. BECLOMETHASONE DIPROPIONATE [Concomitant]
  3. SERETIDE MITE [Concomitant]
  4. AMLODIPIE BESILATE [Concomitant]
  5. TRANDOLAPRIL [Concomitant]
  6. ATORVASTATIN CALCIUM [Concomitant]
  7. ACETAMINOPHEN [Concomitant]

REACTIONS (7)
  - CONVULSION [None]
  - DYSPNOEA [None]
  - HEPATIC ENZYME ABNORMAL [None]
  - INJECTION SITE BURNING [None]
  - LOSS OF CONSCIOUSNESS [None]
  - PARAESTHESIA [None]
  - SKIN DISCOLOURATION [None]
